FAERS Safety Report 13086243 (Version 1)
Quarter: 2017Q1

REPORT INFORMATION
  Report Type: Spontaneous
  Country: US (occurrence: US)
  Receive Date: 20170104
  Receipt Date: 20170104
  Transmission Date: 20170428
  Serious: No
  Sender: FDA-Public Use
  Company Number: US-ALLERGAN-1000087102

PATIENT
  Sex: Male

DRUGS (3)
  1. VRAYLAR [Suspect]
     Active Substance: CARIPRAZINE
     Dosage: 6 MG, UNK
  2. VRAYLAR [Suspect]
     Active Substance: CARIPRAZINE
     Indication: SCHIZOAFFECTIVE DISORDER
     Dosage: 3 MG, UNK
  3. PRAZOSIN [Concomitant]
     Active Substance: PRAZOSIN
     Indication: POST-TRAUMATIC STRESS DISORDER
     Route: 065

REACTIONS (5)
  - Delusion [Unknown]
  - Hallucination [Unknown]
  - Drug ineffective [Unknown]
  - Off label use [Unknown]
  - Dissociative identity disorder [Unknown]
